FAERS Safety Report 15293569 (Version 1)
Quarter: 2018Q3

REPORT INFORMATION
  Report Type: Spontaneous
  Country: US (occurrence: US)
  Receive Date: 20180820
  Receipt Date: 20180820
  Transmission Date: 20181010
  Serious: No
  Sender: FDA-Public Use
  Company Number: US-TEVA-813094USA

PATIENT
  Age: 17 Year
  Sex: Female

DRUGS (4)
  1. VENLAFAXINE [Suspect]
     Active Substance: VENLAFAXINE HYDROCHLORIDE
     Indication: SYNCOPE
  2. VENLAFAXINE [Suspect]
     Active Substance: VENLAFAXINE HYDROCHLORIDE
     Indication: MIGRAINE
     Dates: start: 20170926, end: 20170927
  3. VENLAFAXINE [Suspect]
     Active Substance: VENLAFAXINE HYDROCHLORIDE
     Indication: SEIZURE
  4. VENLAFAXINE [Suspect]
     Active Substance: VENLAFAXINE HYDROCHLORIDE
     Indication: HYPOTENSION

REACTIONS (4)
  - Agitation [Unknown]
  - Headache [Recovered/Resolved]
  - Nausea [Unknown]
  - Product use in unapproved indication [Unknown]
